FAERS Safety Report 5006611-7 (Version None)
Quarter: 2006Q2

REPORT INFORMATION
  Report Type: 
  Country: None (occurrence: None)
  Receive Date: 20060519
  Receipt Date: 20060425
  Transmission Date: 20061013
  Serious: Yes (Other)
  Sender: FDA-Public Use
  Company Number: FR-GLAXOSMITHKLINE-B0423217A

PATIENT
  Age: 14 Year
  Sex: Female

DRUGS (2)
  1. LAMICTAL [Suspect]
     Indication: EPILEPSY
     Route: 048
     Dates: start: 20060201
  2. RIVOTRIL [Concomitant]
     Route: 065
     Dates: start: 20060201, end: 20060317

REACTIONS (4)
  - ALOPECIA [None]
  - AMENORRHOEA [None]
  - DRUG INEFFECTIVE [None]
  - PETIT MAL EPILEPSY [None]
